FAERS Safety Report 4669787-7 (Version None)
Quarter: 2005Q2

REPORT INFORMATION
  Report Type: 
  Country: None (occurrence: None)
  Receive Date: 20050520
  Receipt Date: 20050502
  Transmission Date: 20051028
  Serious: Yes (Disabling)
  Sender: FDA-Public Use
  Company Number: US_0505116945

PATIENT
  Age: 87 Year
  Sex: Female
  Weight: 66 kg

DRUGS (2)
  1. CYMBALTA [Suspect]
     Indication: NEUROPATHY PERIPHERAL
     Dosage: 20 MG DAY
  2. LIPITOR [Concomitant]

REACTIONS (5)
  - DIFFICULTY IN WALKING [None]
  - FACIAL PARESIS [None]
  - MICROANGIOPATHY [None]
  - NUCLEAR MAGNETIC RESONANCE IMAGING BRAIN ABNORMAL [None]
  - SPEECH DISORDER [None]
